FAERS Safety Report 9201172 (Version 1)
Quarter: 2013Q2

REPORT INFORMATION
  Report Type: Report from Study
  Country: ES (occurrence: ES)
  Receive Date: 20130401
  Receipt Date: 20130401
  Transmission Date: 20140414
  Serious: Yes (Other)
  Sender: FDA-Public Use
  Company Number: PHHY2013ES030863

PATIENT
  Sex: Female
  Weight: 1.54 kg

DRUGS (1)
  1. ICL670A [Suspect]
     Dosage: MATHERNAL DOSE: 1250 MG, PER DAY
     Route: 064

REACTIONS (3)
  - Premature baby [Unknown]
  - Low birth weight baby [Unknown]
  - Foetal exposure during delivery [Unknown]
